FAERS Safety Report 24697715 (Version 1)
Quarter: 2024Q4

REPORT INFORMATION
  Report Type: Other
  Country: US (occurrence: US)
  Receive Date: 20241204
  Receipt Date: 20241204
  Transmission Date: 20250115
  Serious: Yes (Life-Threatening)
  Sender: RARE DISEASE THERAPEUTICS, INC.
  Company Number: US-Rare Disease Therapeutics, Inc.-2166492

PATIENT
  Age: 47 Year
  Sex: Male

DRUGS (1)
  1. ANAVIP [Suspect]
     Active Substance: PIT VIPER (CROTALINAE) IMMUNE GLOBULIN ANTIVENIN (EQUINE)

REACTIONS (7)
  - Pruritus [Recovered/Resolved]
  - Obstructive airways disorder [Recovered/Resolved]
  - Oropharyngeal oedema [Recovered/Resolved]
  - Dysphagia [Recovered/Resolved]
  - Pruritus [Recovered/Resolved]
  - Ear swelling [Recovered/Resolved]
  - Urticaria [Recovered/Resolved]
